FAERS Safety Report 6447567-X (Version None)
Quarter: 2009Q4

REPORT INFORMATION
  Report Type: 
  Country: None (occurrence: None)
  Receive Date: 20091119
  Receipt Date: 20090119
  Transmission Date: 20100525
  Serious: Yes (Other)
  Sender: FDA-Public Use
  Company Number: US-AMGEN-QUU291809

PATIENT
  Sex: Female

DRUGS (3)
  1. ENBREL [Suspect]
     Indication: RHEUMATOID ARTHRITIS
     Route: 058
  2. PLAQUENIL [Concomitant]
     Route: 048
  3. METHOTREXATE [Concomitant]
     Route: 048

REACTIONS (7)
  - ARTHRITIS [None]
  - IMPAIRED HEALING [None]
  - NAUSEA [None]
  - OPEN WOUND [None]
  - OSTEOARTHRITIS [None]
  - PNEUMONIA [None]
  - SKIN CANCER [None]
